FAERS Safety Report 10131277 (Version 1)
Quarter: 2014Q2

REPORT INFORMATION
  Report Type: Spontaneous
  Country: US (occurrence: US)
  Receive Date: 20140428
  Receipt Date: 20140428
  Transmission Date: 20141212
  Serious: No
  Sender: FDA-Public Use
  Company Number: US-PFIZER INC-2014116605

PATIENT
  Age: 35 Year
  Sex: Female
  Weight: 90 kg

DRUGS (1)
  1. ESTRING [Suspect]
     Indication: OESTROGEN REPLACEMENT THERAPY
     Dosage: UNK
     Route: 067
     Dates: start: 201310

REACTIONS (2)
  - Drug ineffective [Unknown]
  - Product quality issue [Unknown]
